FAERS Safety Report 7967541-1 (Version None)
Quarter: 2011Q4

REPORT INFORMATION
  Report Type: 
  Country: None (occurrence: None)
  Receive Date: 20111207
  Receipt Date: 20111123
  Transmission Date: 20120403
  Serious: Yes (Hospitalization)
  Sender: FDA-Public Use
  Company Number: 2011-01284

PATIENT
  Age: 82 Year
  Sex: Female
  Weight: 74.8435 kg

DRUGS (4)
  1. COUMADIN [Concomitant]
  2. LEVOTHYROXINE (TABLETS) [Concomitant]
  3. LOSARTAN POTASSIUM [Suspect]
     Indication: ATRIAL FIBRILLATION
     Dosage: 50;25; MG, DAILY, PER ORAL
     Route: 048
     Dates: start: 20110101, end: 20111001
  4. LOSARTAN POTASSIUM [Suspect]
     Indication: ATRIAL FIBRILLATION
     Dosage: 50;25; MG, DAILY, PER ORAL
     Route: 048
     Dates: start: 20111013, end: 20111104

REACTIONS (6)
  - TRANSIENT ISCHAEMIC ATTACK [None]
  - APHASIA [None]
  - CEREBROVASCULAR ACCIDENT [None]
  - CATARACT [None]
  - VISION BLURRED [None]
  - DIZZINESS [None]
